FAERS Safety Report 22347425 (Version 1)
Quarter: 2023Q2

REPORT INFORMATION
  Report Type: Report from Study
  Country: IT (occurrence: IT)
  Receive Date: 20230521
  Receipt Date: 20230521
  Transmission Date: 20230721
  Serious: Yes (Hospitalization, Other)
  Sender: FDA-Public Use
  Company Number: IT-ABBVIE-4770592

PATIENT
  Age: 71 Year
  Sex: Male
  Weight: 70 kg

DRUGS (3)
  1. VENETOCLAX [Suspect]
     Active Substance: VENETOCLAX
     Indication: Acute myeloid leukaemia
     Dosage: LAST DOSE ADMINISTERED: 400 MG/DAY
     Route: 048
     Dates: start: 20211221, end: 20220320
  2. DECITABINE [Suspect]
     Active Substance: DECITABINE
     Indication: Acute myeloid leukaemia
     Dosage: LAST DOSE ADMINISTERED: 20 MG/SQM/DAY
     Route: 065
     Dates: start: 20211221, end: 20220225
  3. VALGANCICLOVIR HYDROCHLORIDE [Concomitant]
     Active Substance: VALGANCICLOVIR HYDROCHLORIDE
     Indication: Antiviral treatment
     Dates: start: 20220903, end: 20220927

REACTIONS (4)
  - Bronchospasm [Unknown]
  - Pneumonia [Recovered/Resolved]
  - Hypoxia [Recovered/Resolved]
  - Allogenic stem cell transplantation [Unknown]

NARRATIVE: CASE EVENT DATE: 20220422
